FAERS Safety Report 5065743-8 (Version None)
Quarter: 2006Q3

REPORT INFORMATION
  Report Type: 
  Country: None (occurrence: None)
  Receive Date: 20060731
  Receipt Date: 20060306
  Transmission Date: 20061208
  Serious: Yes (Other)
  Sender: FDA-Public Use
  Company Number: JP-ROCHE-439566

PATIENT
  Age: 76 Year
  Sex: Male
  Weight: 58 kg

DRUGS (3)
  1. TAMIFLU [Suspect]
     Route: 048
     Dates: start: 20060303, end: 20060303
  2. TAMIFLU [Suspect]
     Dosage: INCREASED DOSAGE.
     Route: 048
     Dates: start: 20060304, end: 20060305
  3. TAMIFLU [Suspect]
     Dosage: DECREASED DOSAGE.
     Route: 048
     Dates: start: 20060306, end: 20060306

REACTIONS (6)
  - DISORIENTATION [None]
  - HALLUCINATION [None]
  - INCONTINENCE [None]
  - INSOMNIA [None]
  - LOGORRHOEA [None]
  - RESTLESSNESS [None]
